FAERS Safety Report 10040606 (Version 3)
Quarter: 2015Q1

REPORT INFORMATION
  Report Type: Spontaneous
  Country: CH (occurrence: CH)
  Receive Date: 20140327
  Receipt Date: 20150213
  Transmission Date: 20150720
  Serious: Yes (Disabling)
  Sender: FDA-Public Use
  Company Number: CH-BAYER-2014-045279

PATIENT
  Age: 33 Year
  Sex: Female

DRUGS (1)
  1. YASMIN [Suspect]
     Active Substance: DROSPIRENONE\ETHINYL ESTRADIOL
     Indication: CONTRACEPTION
     Dosage: 1 DF, PRN
     Route: 048
     Dates: start: 2009, end: 201401

REACTIONS (5)
  - Abdominal pain [Recovered/Resolved]
  - Activities of daily living impaired [None]
  - Diarrhoea [Recovered/Resolved]
  - Sleep disorder [None]
  - Weight decreased [None]

NARRATIVE: CASE EVENT DATE: 2011
